FAERS Safety Report 5056761-4 (Version None)
Quarter: 2006Q2

REPORT INFORMATION
  Report Type: 
  Country: None (occurrence: None)
  Receive Date: 20060616
  Receipt Date: 20060520
  Transmission Date: 20061013
  Serious: No
  Sender: FDA-Public Use
  Company Number: 222547

PATIENT
  Age: 65 Year
  Sex: Male

DRUGS (3)
  1. AVASTIN [Suspect]
     Indication: NON-SMALL CELL LUNG CANCER
     Dosage: 15 MG/KG
  2. CARBOPLATIN [Concomitant]
  3. PLACLITAXEL (PLACLITAXEL) [Concomitant]

REACTIONS (1)
  - NEUROPATHY [None]
